FAERS Safety Report 9512905 (Version 3)
Quarter: 2013Q4

REPORT INFORMATION
  Report Type: Spontaneous
  Country: US (occurrence: US)
  Receive Date: 20130910
  Receipt Date: 20131024
  Transmission Date: 20140711
  Serious: Yes (Hospitalization)
  Sender: FDA-Public Use
  Company Number: US-ASTELLAS-2013US008669

PATIENT
  Age: 55 Year
  Sex: Male

DRUGS (1)
  1. XTANDI [Suspect]
     Indication: PROSTATE CANCER
     Dosage: 160 MG, UID/QD
     Route: 048
     Dates: start: 20130515

REACTIONS (5)
  - Decreased appetite [Unknown]
  - Muscular weakness [Unknown]
  - Hospitalisation [Unknown]
  - Tremor [Recovering/Resolving]
  - Back pain [Recovering/Resolving]
